FAERS Safety Report 17159314 (Version 1)
Quarter: 2019Q4

REPORT INFORMATION
  Report Type: Spontaneous
  Country: US (occurrence: US)
  Receive Date: 20191215
  Receipt Date: 20191215
  Transmission Date: 20200122
  Serious: Yes (Hospitalization)
  Sender: FDA-Public Use
  Company Number: None

PATIENT
  Age: 87 Year
  Sex: Male
  Weight: 103.8 kg

DRUGS (6)
  1. FINASTERIDE 5MG DAILY [Concomitant]
  2. PREDNISONE 80MG DAILY [Concomitant]
  3. RANITIDINE 150MG BID [Concomitant]
     Active Substance: RANITIDINE
  4. LEVOTHYROXINE 50MCG DAILY [Concomitant]
  5. RIVAROXABAN [Suspect]
     Active Substance: RIVAROXABAN
     Indication: ATRIAL FIBRILLATION
     Route: 048
  6. MULTIVITAMIN DAILY [Concomitant]

REACTIONS (5)
  - Anaemia [None]
  - Abdominal discomfort [None]
  - Dyspnoea exertional [None]
  - Gastrointestinal haemorrhage [None]
  - Melaena [None]

NARRATIVE: CASE EVENT DATE: 20160826
